FAERS Safety Report 5602617-5 (Version None)
Quarter: 2008Q1

REPORT INFORMATION
  Report Type: 
  Country: None (occurrence: None)
  Receive Date: 20080125
  Receipt Date: 20080122
  Transmission Date: 20080703
  Serious: No
  Sender: FDA-Public Use
  Company Number: US-BAXTER-2008BH000634

PATIENT
  Age: 9 Year
  Sex: Female

DRUGS (1)
  1. HEPARIN SODIUM [Suspect]
     Indication: LOW DENSITY LIPOPROTEIN APHERESIS
     Dosage: DOSE UNIT:UNKNOWN
     Route: 040
     Dates: start: 20080117, end: 20080117

REACTIONS (2)
  - ABDOMINAL PAIN UPPER [None]
  - TREMOR [None]
